FAERS Safety Report 9649658 (Version 1)
Quarter: 2013Q4

REPORT INFORMATION
  Report Type: Report from Study
  Country: AR (occurrence: AR)
  Receive Date: 20131028
  Receipt Date: 20131028
  Transmission Date: 20140711
  Serious: Yes (Other)
  Sender: FDA-Public Use
  Company Number: AR-ROCHE-1295117

PATIENT
  Sex: Female

DRUGS (1)
  1. LUCENTIS [Suspect]
     Indication: AGE-RELATED MACULAR DEGENERATION
     Dosage: START DATE (2008 OR 2009)
     Route: 050

REACTIONS (2)
  - Osteoporosis [Recovering/Resolving]
  - Blindness unilateral [Not Recovered/Not Resolved]
